FAERS Safety Report 5006431-3 (Version None)
Quarter: 2006Q2

REPORT INFORMATION
  Report Type: 
  Country: None (occurrence: None)
  Receive Date: 20060516
  Receipt Date: 20060502
  Transmission Date: 20061013
  Serious: Yes (Other)
  Sender: FDA-Public Use
  Company Number: US200605000702

PATIENT
  Age: 54 Year
  Sex: Female

DRUGS (6)
  1. XIGRIS [Suspect]
     Indication: SEPSIS
     Dates: start: 20060501, end: 20060501
  2. ZOSYN [Concomitant]
  3. LIPITOR [Concomitant]
  4. LEVOPHED [Concomitant]
  5. VASOPRESSIN INJECTION (VASOPRESSIN INJECTION) [Concomitant]
  6. HEPARIN SODIUM [Concomitant]

REACTIONS (2)
  - PHARMACEUTICAL PRODUCT COMPLAINT [None]
  - PYREXIA [None]
